FAERS Safety Report 6165424-3 (Version None)
Quarter: 2009Q2

REPORT INFORMATION
  Report Type: 
  Country: None (occurrence: None)
  Receive Date: 20090423
  Receipt Date: 20090416
  Transmission Date: 20091009
  Serious: Yes (Other)
  Sender: FDA-Public Use
  Company Number: US-ABBOTT-09P-163-0568759-00

PATIENT
  Sex: Male

DRUGS (2)
  1. DEPAKOTE [Suspect]
     Indication: DRUG USE FOR UNKNOWN INDICATION
  2. CLOZARIL [Suspect]
     Indication: DRUG USE FOR UNKNOWN INDICATION

REACTIONS (7)
  - APHASIA [None]
  - DELUSIONAL DISORDER, UNSPECIFIED TYPE [None]
  - LYMPHOMA [None]
  - MOVEMENT DISORDER [None]
  - PSYCHOTIC DISORDER [None]
  - TESTIS CANCER [None]
  - WEIGHT INCREASED [None]
